FAERS Safety Report 12296927 (Version 1)
Quarter: 2016Q2

REPORT INFORMATION
  Report Type: Report from Study
  Country: MY (occurrence: MY)
  Receive Date: 20160422
  Receipt Date: 20160422
  Transmission Date: 20160815
  Serious: Yes (Death, Hospitalization)
  Sender: FDA-Public Use
  Company Number: MY-B.I. PHARMACEUTICALS,INC./RIDGEFIELD-2016-BI-25384MD

PATIENT
  Age: 50 Year
  Sex: Female

DRUGS (1)
  1. GILOTRIF [Suspect]
     Active Substance: AFATINIB
     Indication: DRUG THERAPY
     Dosage: 40 MG
     Route: 048
     Dates: start: 201503, end: 201504

REACTIONS (3)
  - Rash [Fatal]
  - Neoplasm malignant [Fatal]
  - Diarrhoea [Fatal]

NARRATIVE: CASE EVENT DATE: 201503
